FAERS Safety Report 24559527 (Version 1)
Quarter: 2024Q4

REPORT INFORMATION
  Report Type: Spontaneous
  Country: US (occurrence: US)
  Receive Date: 20241029
  Receipt Date: 20241029
  Transmission Date: 20250115
  Serious: No
  Sender: EPIC PHARM
  Company Number: US-EPICPHARMA-US-2024EPCSPO01310

PATIENT
  Age: 61 Year
  Sex: Male

DRUGS (2)
  1. BUPROPION HYDROCHLORIDE [Suspect]
     Active Substance: BUPROPION HYDROCHLORIDE
     Indication: Pityriasis rubra pilaris
     Route: 065
  2. HALOBETASOL [Suspect]
     Active Substance: HALOBETASOL
     Indication: Pityriasis rubra pilaris
     Route: 065

REACTIONS (1)
  - Drug ineffective for unapproved indication [Unknown]
